FAERS Safety Report 18720980 (Version 1)
Quarter: 2021Q1

REPORT INFORMATION
  Report Type: Spontaneous
  Country: CN (occurrence: CN)
  Receive Date: 20210108
  Receipt Date: 20210108
  Transmission Date: 20210419
  Serious: Yes (Other)
  Sender: FDA-Public Use
  Company Number: CN-PURDUE-USA-2020-0194993

PATIENT
  Age: 63 Year
  Sex: Male
  Weight: 50 kg

DRUGS (4)
  1. OXYCONTIN [Suspect]
     Active Substance: OXYCODONE HYDROCHLORIDE
     Indication: CANCER PAIN
     Dosage: 30 MG, Q12H
     Route: 048
     Dates: start: 20201212, end: 20201215
  2. OXYCONTIN [Suspect]
     Active Substance: OXYCODONE HYDROCHLORIDE
     Dosage: 40 MG, Q12H
     Route: 048
     Dates: start: 20201209, end: 20201212
  3. HYDROMORPHONE HYDROCHLORIDE. [Suspect]
     Active Substance: HYDROMORPHONE HYDROCHLORIDE
     Indication: CANCER PAIN
     Dosage: 24 MG, DAILY [MAINTENANCE DOSE 1MG/24H, SINGLE DOSE: 0.7MG/TIME, LOCKING TIME: 8 MINUTES]
     Route: 041
     Dates: start: 20201212, end: 20201212
  4. HYDROMORPHONE HYDROCHLORIDE. [Suspect]
     Active Substance: HYDROMORPHONE HYDROCHLORIDE
     Dosage: 24 MG, DAILY [MAINTENANCE DOSE 1MG/24H, SINGLE DOSE: 0.7MG/TIME, LOCKING TIME: 8 MINUTES]
     Route: 041
     Dates: start: 20201209, end: 20201209

REACTIONS (1)
  - Delirium [Recovered/Resolved]

NARRATIVE: CASE EVENT DATE: 20201212
